FAERS Safety Report 4966126-9 (Version None)
Quarter: 2006Q2

REPORT INFORMATION
  Report Type: 
  Country: None (occurrence: None)
  Receive Date: 20060403
  Receipt Date: 20060317
  Transmission Date: 20061013
  Serious: Yes (Hospitalization)
  Sender: FDA-Public Use
  Company Number: COT_0478_2006

PATIENT
  Age: 69 Year
  Sex: Male
  Weight: 80.2867 kg

DRUGS (9)
  1. VENTAVIS [Suspect]
     Indication: PULMONARY HYPERTENSION
     Dosage: 5 MCG 6XD IH
     Route: 055
     Dates: start: 20060215
  2. SILDENAFIL [Concomitant]
  3. AMIODARONE HCL [Concomitant]
  4. METOLAZONE [Concomitant]
  5. COUMADIN [Concomitant]
  6. LASIX [Concomitant]
  7. POTASSIUM CHLORIDE [Concomitant]
  8. ZEBETA [Concomitant]
  9. DIGOXIN [Concomitant]

REACTIONS (2)
  - OEDEMA PERIPHERAL [None]
  - PLEURAL EFFUSION [None]
